FAERS Safety Report 16929669 (Version 1)
Quarter: 2019Q4

REPORT INFORMATION
  Report Type: Spontaneous
  Country: US (occurrence: US)
  Receive Date: 20191017
  Receipt Date: 20191017
  Transmission Date: 20200122
  Serious: Yes (Other)
  Sender: FDA-Public Use
  Company Number: US-ROCHE-2434349

PATIENT
  Age: 76 Year
  Sex: Male
  Weight: 86.26 kg

DRUGS (1)
  1. TECENTRIQ [Suspect]
     Active Substance: ATEZOLIZUMAB
     Indication: SMALL CELL LUNG CANCER
     Dosage: ONGOING: YES?MOST RECENT 17/SEP/2019
     Route: 042

REACTIONS (1)
  - Mediastinal mass [Not Recovered/Not Resolved]

NARRATIVE: CASE EVENT DATE: 20190904
